FAERS Safety Report 4944107-9 (Version None)
Quarter: 2006Q1

REPORT INFORMATION
  Report Type: 
  Country: None (occurrence: None)
  Receive Date: 20060315
  Receipt Date: 20060308
  Transmission Date: 20060701
  Serious: Yes (Life-Threatening, Hospitalization)
  Sender: FDA-Public Use
  Company Number: 2006PK00470

PATIENT
  Age: 81 Year
  Sex: Female

DRUGS (4)
  1. SEROQUEL [Suspect]
     Route: 048
     Dates: start: 20021201, end: 20030219
  2. THOMAPYRIN [Suspect]
     Route: 048
     Dates: start: 20030219, end: 20030219
  3. EDRONAX [Suspect]
     Dates: start: 20030114, end: 20030219
  4. NEUROCIL [Suspect]
     Dates: start: 20030115, end: 20030219

REACTIONS (2)
  - INTENTIONAL OVERDOSE [None]
  - SUICIDE ATTEMPT [None]
